FAERS Safety Report 23191691 (Version 6)
Quarter: 2024Q1

REPORT INFORMATION
  Report Type: Report from Study
  Country: CO (occurrence: CO)
  Receive Date: 20231116
  Receipt Date: 20240314
  Transmission Date: 20240410
  Serious: Yes (Hospitalization, Other)
  Sender: FDA-Public Use
  Company Number: CO-002147023-NVSC2023CO155088

PATIENT
  Age: 70 Year
  Sex: Female
  Weight: 56 kg

DRUGS (3)
  1. KISQALI [Suspect]
     Active Substance: RIBOCICLIB
     Indication: Hormone receptor positive HER2 negative breast cancer
     Dosage: 600 MG, QD
     Route: 048
     Dates: start: 20230610
  2. KISQALI [Suspect]
     Active Substance: RIBOCICLIB
     Indication: Breast cancer metastatic
  3. FEMARA [Suspect]
     Active Substance: LETROZOLE
     Indication: Breast cancer
     Dosage: UNK, QD
     Route: 048

REACTIONS (17)
  - Breast cancer metastatic [Unknown]
  - Malignant neoplasm progression [Unknown]
  - Metastases to bone [Unknown]
  - Disease recurrence [Unknown]
  - Malaise [Unknown]
  - Lung disorder [Unknown]
  - Bacterial infection [Unknown]
  - Liver disorder [Unknown]
  - Hepatic steatosis [Unknown]
  - Cough [Not Recovered/Not Resolved]
  - Hepatic lesion [Unknown]
  - Laboratory test abnormal [Unknown]
  - Therapeutic response unexpected [Unknown]
  - Lymphadenitis [Unknown]
  - Skin exfoliation [Unknown]
  - Anxiety [Unknown]
  - Depression [Unknown]

NARRATIVE: CASE EVENT DATE: 20231017
